FAERS Safety Report 6456646-2 (Version None)
Quarter: 2009Q4

REPORT INFORMATION
  Report Type: 
  Country: None (occurrence: None)
  Receive Date: 20091125
  Receipt Date: 20091117
  Transmission Date: 20100525
  Serious: Yes (Hospitalization)
  Sender: FDA-Public Use
  Company Number: JP-JNJFOC-20091103023

PATIENT
  Sex: Male
  Weight: 65 kg

DRUGS (9)
  1. REMICADE [Suspect]
     Route: 042
     Dates: end: 20091105
  2. REMICADE [Suspect]
     Indication: CROHN'S DISEASE
     Route: 042
     Dates: end: 20091105
  3. PENTASA [Concomitant]
     Indication: CROHN'S DISEASE
     Route: 048
  4. LAC-B [Concomitant]
     Indication: CROHN'S DISEASE
     Route: 048
  5. GASMOTIN [Concomitant]
     Indication: CROHN'S DISEASE
     Route: 048
  6. DIPHENHYDRAMINE HCL [Concomitant]
     Indication: PREMEDICATION
     Route: 048
     Dates: start: 20091105, end: 20091105
  7. CALONAL [Concomitant]
     Indication: PREMEDICATION
     Route: 048
  8. GASTER D [Concomitant]
     Indication: PREMEDICATION
     Route: 048
     Dates: start: 20091105, end: 20091105
  9. HYDROCORTISONE SODIUM PHOSPHATE [Concomitant]
     Indication: PREMEDICATION

REACTIONS (10)
  - BLOOD PRESSURE DECREASED [None]
  - DYSPNOEA [None]
  - ERYTHEMA [None]
  - INFUSION RELATED REACTION [None]
  - OEDEMA PERIPHERAL [None]
  - OXYGEN SATURATION DECREASED [None]
  - PERIPHERAL COLDNESS [None]
  - PRURITUS [None]
  - RASH [None]
  - VOMITING [None]
